FAERS Safety Report 10432233 (Version 1)
Quarter: 2014Q3

REPORT INFORMATION
  Report Type: Spontaneous
  Country: US (occurrence: None)
  Receive Date: 20140815
  Receipt Date: 20140815
  Transmission Date: 20150326
  Serious: No
  Sender: FDA-Public Use
  Company Number: A-NJ2014-102386

PATIENT
  Age: 70 Year
  Sex: Male

DRUGS (5)
  1. OPSUMIT [Suspect]
     Active Substance: MACITENTAN
     Indication: PULMONARY ARTERIAL HYPERTENSION
     Route: 048
  2. VENTAVIS [Suspect]
     Active Substance: ILOPROST
     Route: 055
  3. OPSUMIT [Suspect]
     Active Substance: MACITENTAN
     Indication: PULMONARY HYPERTENSION
     Route: 048
  4. AMIODARONE (AMIODARONE) [Concomitant]
     Active Substance: AMIODARONE
  5. SILDENAFIL (SILDENAFIL) [Concomitant]
     Active Substance: SILDENAFIL

REACTIONS (2)
  - Oedema [None]
  - Fluid retention [None]
